FAERS Safety Report 20904361 (Version 1)
Quarter: 2022Q2

REPORT INFORMATION
  Report Type: Spontaneous
  Country: BR (occurrence: BR)
  Receive Date: 20220602
  Receipt Date: 20220602
  Transmission Date: 20220721
  Serious: Yes (Other)
  Sender: FDA-Public Use
  Company Number: BR-AMGEN-BRASP2022086379

PATIENT
  Sex: Female

DRUGS (3)
  1. EVENITY [Suspect]
     Active Substance: ROMOSOZUMAB-AQQG
     Indication: Osteoporosis
     Dosage: UNK UNK, QMO
     Route: 058
  2. COVID-19 vaccine [Concomitant]
     Dosage: UNK
     Dates: start: 2022
  3. INFLUENZA VIRUS VACCINE [Concomitant]
     Active Substance: INFLUENZA VIRUS VACCINE
     Dosage: UNK

REACTIONS (7)
  - Chagas^ cardiomyopathy [Unknown]
  - Cardiac failure [Unknown]
  - Frequent bowel movements [Unknown]
  - Mucous stools [Unknown]
  - Diarrhoea [Unknown]
  - Furuncle [Unknown]
  - Skin lesion [Unknown]

NARRATIVE: CASE EVENT DATE: 20220101
